FAERS Safety Report 12248509 (Version 1)
Quarter: 2016Q2

REPORT INFORMATION
  Report Type: Spontaneous
  Country: US (occurrence: None)
  Receive Date: 20160407
  Receipt Date: 20160407
  Transmission Date: 20160815
  Serious: Yes (Death)
  Sender: FDA-Public Use
  Company Number: None

PATIENT
  Age: 57 Year
  Sex: Male
  Weight: 68 kg

DRUGS (2)
  1. INSULIN [Suspect]
     Active Substance: INSULIN NOS
  2. METFORMIN [Suspect]
     Active Substance: METFORMIN HYDROCHLORIDE

REACTIONS (4)
  - Fatigue [None]
  - Cardiac failure [None]
  - Weight increased [None]
  - Asthenia [None]

NARRATIVE: CASE EVENT DATE: 20140817
